FAERS Safety Report 13152826 (Version 1)
Quarter: 2017Q1

REPORT INFORMATION
  Report Type: Spontaneous
  Country: GB (occurrence: GB)
  Receive Date: 20170126
  Receipt Date: 20170126
  Transmission Date: 20170428
  Serious: Yes (Other)
  Sender: FDA-Public Use
  Company Number: GB-JNJFOC-20170111270

PATIENT
  Age: 26 Year
  Sex: Female
  Weight: 111 kg

DRUGS (9)
  1. PARACETAMOL [Suspect]
     Active Substance: ACETAMINOPHEN
     Route: 065
  2. RIGEVIDON [Concomitant]
     Active Substance: ETHINYL ESTRADIOL\LEVONORGESTREL
     Indication: PRODUCT USED FOR UNKNOWN INDICATION
     Dosage: TAKE ONE AS DIRECTED
     Route: 065
     Dates: start: 20161223
  3. SALBUTAMOL [Concomitant]
     Active Substance: ALBUTEROL
     Indication: PRODUCT USED FOR UNKNOWN INDICATION
     Dosage: 2 AS REQUIRED
     Route: 065
     Dates: start: 20160712
  4. AMOXICILLIN. [Concomitant]
     Active Substance: AMOXICILLIN
     Indication: PRODUCT USED FOR UNKNOWN INDICATION
     Dosage: DOSE 1 (UNIT UNSPECIFIED). CUMULATIVE DOSE TO FIRST REACTION: 255.125
     Route: 065
     Dates: start: 20161011, end: 20161018
  5. MONTELUKAST [Concomitant]
     Active Substance: MONTELUKAST SODIUM
     Indication: PRODUCT USED FOR UNKNOWN INDICATION
     Dosage: DOSE 1 (UNIT UNSPECIFIED),AT NIGHT, CUMULATIVE DOSE TO FIRST REACTION: 85.0416666 (UNIT UNSPECIFIED)
     Route: 065
     Dates: start: 20161011, end: 20161108
  6. RANITIDINE. [Concomitant]
     Active Substance: RANITIDINE
     Indication: PRODUCT USED FOR UNKNOWN INDICATION
     Dosage: DOSE 1, CUMULATIVE DOSE TO FIRST REACTION: 168.083333 (UNIT UNSPECIFIED)
     Route: 065
     Dates: start: 20161012, end: 20161111
  7. FLUOXETINE [Concomitant]
     Active Substance: FLUOXETINE HYDROCHLORIDE
     Indication: PRODUCT USED FOR UNKNOWN INDICATION
     Dosage: DOSE: 1.0 (UNIT UNSPECIFIED)
     Route: 065
     Dates: start: 20161223
  8. PARACETAMOL [Suspect]
     Active Substance: ACETAMINOPHEN
     Indication: PRODUCT USED FOR UNKNOWN INDICATION
     Route: 065
     Dates: start: 20160907
  9. QVAR [Concomitant]
     Active Substance: BECLOMETHASONE DIPROPIONATE
     Indication: PRODUCT USED FOR UNKNOWN INDICATION
     Dosage: DOSE 1 (UNIT UNSPECIFIED)??CUMULATIVE DOSE TO FIRST REACTION: 352.083333 (UNIT UNSPECIFIED)
     Route: 055
     Dates: start: 20160712

REACTIONS (1)
  - Dyspnoea [Recovered/Resolved]

NARRATIVE: CASE EVENT DATE: 20170104
